FAERS Safety Report 7498303-X (Version None)
Quarter: 2011Q2

REPORT INFORMATION
  Report Type: 
  Country: None (occurrence: None)
  Receive Date: 20110524
  Receipt Date: 20110429
  Transmission Date: 20111010
  Serious: Yes (Hospitalization, Other)
  Sender: FDA-Public Use
  Company Number: US-BAYER-2011-017598

PATIENT
  Age: 26 Year
  Sex: Female
  Weight: 78.005 kg

DRUGS (8)
  1. MOTRIN [Concomitant]
  2. PROPOXYPHENE NAPSYLATE AND ACETAMINOPHEN [Concomitant]
     Dosage: UNK
     Dates: start: 20090508
  3. VITAMIN D [Concomitant]
  4. RIBOFLAVIN [Concomitant]
  5. ACETAMINOPHEN AND HYDROCODONE BITARTRATE [Concomitant]
     Dosage: UNK
     Dates: start: 20090408
  6. CALCIUM WITH VITAMIN D [Concomitant]
  7. FLEXERIL [Concomitant]
  8. YASMIN [Suspect]
     Indication: CONTRACEPTION
     Dosage: UNK
     Route: 048
     Dates: start: 20040401, end: 20091201

REACTIONS (2)
  - CHOLECYSTITIS CHRONIC [None]
  - CHOLECYSTECTOMY [None]
